FAERS Safety Report 19874163 (Version 1)
Quarter: 2021Q3

REPORT INFORMATION
  Report Type: Spontaneous
  Country: CA (occurrence: CA)
  Receive Date: 20210923
  Receipt Date: 20210923
  Transmission Date: 20211014
  Serious: Yes (Life-Threatening, Hospitalization)
  Sender: FDA-Public Use
  Company Number: CA-ACCORD-239653

PATIENT
  Age: 57 Year
  Sex: Female
  Weight: 93 kg

DRUGS (18)
  1. LOPRESOR [Concomitant]
     Active Substance: METOPROLOL
  2. DILAUDID [Concomitant]
     Active Substance: HYDROMORPHONE HYDROCHLORIDE
  3. TACROLIMUS. [Concomitant]
     Active Substance: TACROLIMUS
  4. ADVAGRAF [Concomitant]
     Active Substance: TACROLIMUS
  5. NORVASC [Concomitant]
     Active Substance: AMLODIPINE BESYLATE
  6. TYLENOL [Concomitant]
     Active Substance: ACETAMINOPHEN
  7. ZOPICLONE [Concomitant]
     Active Substance: ZOPICLONE
  8. MYCOPHENOLIC ACID. [Suspect]
     Active Substance: MYCOPHENOLIC ACID
     Indication: PROPHYLAXIS AGAINST TRANSPLANT REJECTION
     Dosage: 2 EVERY 1 DAYS
     Route: 048
  9. AVAPRO [Concomitant]
     Active Substance: IRBESARTAN
  10. EZETROL [Concomitant]
     Active Substance: EZETIMIBE
  11. IRON [Concomitant]
     Active Substance: IRON
  12. VITAMIN D [Concomitant]
     Active Substance: VITAMIN D NOS
  13. LIPITOR [Concomitant]
     Active Substance: ATORVASTATIN CALCIUM
     Route: 065
  14. ONEALFA [Concomitant]
     Active Substance: ALFACALCIDOL
  15. PREDNISONE. [Concomitant]
     Active Substance: PREDNISONE
  16. ARANESP [Concomitant]
     Active Substance: DARBEPOETIN ALFA
  17. LASIX [Concomitant]
     Active Substance: FUROSEMIDE
  18. LAX?A?DAY [Concomitant]
     Active Substance: POLYETHYLENE GLYCOL 3350

REACTIONS (2)
  - Herpes zoster meningoencephalitis [Unknown]
  - Cytomegalovirus pancreatitis [Unknown]
